FAERS Safety Report 21366194 (Version 3)
Quarter: 2022Q4

REPORT INFORMATION
  Report Type: Report from Study
  Country: CZ (occurrence: CZ)
  Receive Date: 20220922
  Receipt Date: 20221006
  Transmission Date: 20230112
  Serious: Yes (Hospitalization, Other)
  Sender: FDA-Public Use
  Company Number: CZ-BRISTOL-MYERS SQUIBB COMPANY-2022-108165

PATIENT
  Age: 41 Year
  Sex: Female
  Weight: 76 kg

DRUGS (6)
  1. QUETIAPINE FUMARATE [Concomitant]
     Active Substance: QUETIAPINE FUMARATE
     Indication: Product used for unknown indication
     Route: 048
     Dates: start: 20220812
  2. BRINTELLIX [Concomitant]
     Active Substance: VORTIOXETINE HYDROBROMIDE
     Indication: Prophylaxis
     Dosage: ONGOING
     Route: 048
     Dates: start: 20220812
  3. FRAMYKOIN [BACITRACIN ZINC;NEOMYCIN SULFATE] [Concomitant]
     Indication: Keloid scar
     Dosage: 1 DF- 3 UNITS NOS
     Route: 062
     Dates: start: 20220713
  4. REVITANERV STRONG [Concomitant]
     Indication: Prophylaxis
     Dosage: 1 DF- 10 UNITS NOS
     Route: 048
     Dates: start: 20220819
  5. TIZANIDINE [Concomitant]
     Active Substance: TIZANIDINE
     Indication: Product used for unknown indication
     Route: 048
     Dates: start: 20220715
  6. COMIRNATY [Concomitant]
     Active Substance: TOZINAMERAN
     Indication: COVID-19 prophylaxis
     Dosage: UNK
     Route: 065
     Dates: start: 20211026

REACTIONS (2)
  - Neuropathy peripheral [Recovered/Resolved]
  - Hemiparesis [Recovered/Resolved]

NARRATIVE: CASE EVENT DATE: 20220916
